FAERS Safety Report 15704081 (Version 1)
Quarter: 2018Q4

REPORT INFORMATION
  Report Type: Spontaneous
  Country: BR (occurrence: BR)
  Receive Date: 20181210
  Receipt Date: 20181210
  Transmission Date: 20190205
  Serious: Yes (Hospitalization, Other)
  Sender: FDA-Public Use
  Company Number: BR-PFIZER INC-2018501212

PATIENT
  Age: 64 Year
  Sex: Male

DRUGS (1)
  1. LIPITOR [Suspect]
     Active Substance: ATORVASTATIN CALCIUM
     Indication: CEREBROVASCULAR ACCIDENT
     Dosage: UNK
     Dates: start: 2005

REACTIONS (2)
  - Cerebrovascular accident [Unknown]
  - Gastrointestinal neoplasm [Unknown]

NARRATIVE: CASE EVENT DATE: 20181105
